FAERS Safety Report 6030877-8 (Version None)
Quarter: 2009Q1

REPORT INFORMATION
  Report Type: 
  Country: None (occurrence: None)
  Receive Date: 20090106
  Receipt Date: 20081223
  Transmission Date: 20090719
  Serious: Yes (Other)
  Sender: FDA-Public Use
  Company Number: 55620

PATIENT
  Age: 62 Year
  Sex: Female

DRUGS (1)
  1. METHOTREXATE [Suspect]
     Indication: RHEUMATOID ARTHRITIS
     Dosage: 0.6 ML SUBCUTANEOUSLY ONCE WEEKLY FOR THE PAST 7 YEARS
     Route: 058

REACTIONS (2)
  - INTENTIONAL DRUG MISUSE [None]
  - MEDICATION ERROR [None]
